FAERS Safety Report 17347898 (Version 1)
Quarter: 2020Q1

REPORT INFORMATION
  Report Type: Spontaneous
  Country: US (occurrence: US)
  Receive Date: 20200114
  Receipt Date: 20200114
  Transmission Date: 20200409
  Serious: Yes (Life-Threatening, Hospitalization, Disabling, Other)
  Sender: FDA-Public Use
  Company Number: None

PATIENT
  Age: 80 Year
  Sex: Male
  Weight: 88.45 kg

DRUGS (20)
  1. HYDROCHLOROTHIAZIDE. [Concomitant]
     Active Substance: HYDROCHLOROTHIAZIDE
  2. KLOR-CON [Concomitant]
     Active Substance: POTASSIUM CHLORIDE
  3. CHLECALCIFEROL (VD3 5000) [Concomitant]
  4. FAMOTIDINE. [Concomitant]
     Active Substance: FAMOTIDINE
  5. TAMSULOSIN [Concomitant]
     Active Substance: TAMSULOSIN
  6. TRAMADOL. [Concomitant]
     Active Substance: TRAMADOL
  7. LORATIDINE [Concomitant]
     Active Substance: LORATADINE
  8. GABAPENTIN. [Concomitant]
     Active Substance: GABAPENTIN
  9. LEVOTHYROXINE. [Concomitant]
     Active Substance: LEVOTHYROXINE
  10. ASPIRIN. [Concomitant]
     Active Substance: ASPIRIN
  11. COLESEVELAM (WELCHOL) [Concomitant]
  12. DICLOFENAC [Concomitant]
     Active Substance: DICLOFENAC
  13. MAGNESIUM ASPORATATE [Concomitant]
  14. VITAMIN B COMPLEX [Concomitant]
     Active Substance: CYANOCOBALAMIN\DEXPANTHENOL\NIACINAMIDE\PYRIDOXINE HYDROCHLORIDE\RIBOFLAVIN 5^-PHOSPHATE SODIUM\THIAMINE HYDROCHLORIDE\VITAMIN B COMPLEX
  15. POTASSIUM CHLORIDE ER [Suspect]
     Active Substance: POTASSIUM CHLORIDE
     Indication: BLOOD POTASSIUM DECREASED
     Dosage: 1 PILL TWICE DAILY BY MOUTH?ONE TO TWO WEEKS. UNSURE BECAUSE FINISHED PREVIOUS MEDICATION BEFORE STARTING NEW (WAX) MEDICATION.
     Route: 048
     Dates: start: 20191220, end: 20191230
  16. AZELASTINE NASAL SPRAY [Concomitant]
     Active Substance: AZELASTINE
  17. COQ10 [Concomitant]
     Active Substance: UBIDECARENONE
  18. LEUPROLIDE [Concomitant]
     Active Substance: LEUPROLIDE
  19. XARELTO [Concomitant]
     Active Substance: RIVAROXABAN
  20. CARVEDILOL. [Concomitant]
     Active Substance: CARVEDILOL

REACTIONS (6)
  - Appendicitis [None]
  - Complicated appendicitis [None]
  - Therapy change [None]
  - Foreign body in gastrointestinal tract [None]
  - Constipation [None]
  - Abdominal pain [None]

NARRATIVE: CASE EVENT DATE: 20191228
